FAERS Safety Report 16039439 (Version 1)
Quarter: 2019Q2

REPORT INFORMATION
  Report Type: Spontaneous
  Country: US (occurrence: US)
  Receive Date: 20190305
  Receipt Date: 20190305
  Transmission Date: 20190711
  Serious: Yes (Hospitalization)
  Sender: FDA-Public Use
  Company Number: None

PATIENT
  Age: 23 Year
  Sex: Female
  Weight: 45 kg

DRUGS (1)
  1. PROCHLORPERAZINE. [Suspect]
     Active Substance: PROCHLORPERAZINE
     Indication: NAUSEA
     Route: 058
     Dates: start: 20190207, end: 20190207

REACTIONS (7)
  - Nausea [None]
  - Dizziness [None]
  - Intrusive thoughts [None]
  - Akathisia [None]
  - Palpitations [None]
  - Pain in extremity [None]
  - Anxiety [None]

NARRATIVE: CASE EVENT DATE: 20190207
